FAERS Safety Report 9495859 (Version 1)
Quarter: 2013Q3

REPORT INFORMATION
  Report Type: Spontaneous
  Country: US (occurrence: US)
  Receive Date: 20130903
  Receipt Date: 20130903
  Transmission Date: 20140515
  Serious: Yes (Hospitalization, Other)
  Sender: FDA-Public Use
  Company Number: US-PFIZER INC-2013251164

PATIENT
  Age: 52 Year
  Sex: Female
  Weight: 74.38 kg

DRUGS (2)
  1. NICOTROL INHALER [Suspect]
     Indication: SMOKING CESSATION THERAPY
     Dosage: UNK
     Dates: start: 20130623, end: 201306
  2. NICOTROL INHALER [Suspect]
     Dosage: UNK
     Dates: start: 20130829

REACTIONS (4)
  - Cerebrovascular accident [Recovered/Resolved]
  - Drug intolerance [Unknown]
  - Poor quality drug administered [Unknown]
  - Product quality issue [Unknown]
